FAERS Safety Report 24286559 (Version 3)
Quarter: 2024Q4

REPORT INFORMATION
  Report Type: Spontaneous
  Country: US (occurrence: US)
  Receive Date: 20240905
  Receipt Date: 20241015
  Transmission Date: 20250114
  Serious: No
  Sender: PFIZER
  Company Number: US-PFIZER INC-PV202400115382

PATIENT
  Age: 61 Year
  Sex: Female

DRUGS (3)
  1. TUKYSA [Interacting]
     Active Substance: TUCATINIB
     Dosage: 150 MG
  2. TUKYSA [Interacting]
     Active Substance: TUCATINIB
     Dosage: 150 MG; 2 TABLETS TWICE DAILY
  3. AMLODIPINE [Interacting]
     Active Substance: AMLODIPINE BESYLATE
     Dosage: UNK

REACTIONS (1)
  - Drug interaction [Unknown]
